FAERS Safety Report 12371350 (Version 1)
Quarter: 2016Q2

REPORT INFORMATION
  Report Type: Spontaneous
  Country: US (occurrence: US)
  Receive Date: 20160516
  Receipt Date: 20160516
  Transmission Date: 20160815
  Serious: Yes (Other)
  Sender: FDA-Public Use
  Company Number: US-AMGEN-USASP2016060164

PATIENT
  Sex: Female

DRUGS (5)
  1. CYMBALTA [Concomitant]
     Active Substance: DULOXETINE HYDROCHLORIDE
     Indication: ANXIETY
     Dosage: 30 MG, QD (1 IN 1 D)
  2. KADCYLA [Suspect]
     Active Substance: ADO-TRASTUZUMAB EMTANSINE
     Dosage: UNK GIVEN OVER 30 MINUTES (1 IN 4 WK)
     Route: 042
     Dates: start: 201501
  3. XANAX [Concomitant]
     Active Substance: ALPRAZOLAM
     Indication: ANXIETY
     Dosage: 1 MG, QD (1 IN 1 D) TAKEN AT NIGHT
  4. NEULASTA [Suspect]
     Active Substance: PEGFILGRASTIM
     Indication: WHITE BLOOD CELL COUNT DECREASED
     Route: 062
  5. KADCYLA [Suspect]
     Active Substance: ADO-TRASTUZUMAB EMTANSINE
     Indication: BREAST CANCER METASTATIC
     Dosage: UNK (GIVEN OVER 30 MINUTES (1 IN 4 WK))
     Route: 042

REACTIONS (2)
  - Alopecia [Not Recovered/Not Resolved]
  - White blood cell count decreased [Recovering/Resolving]
